FAERS Safety Report 9997132 (Version 1)
Quarter: 2014Q1

REPORT INFORMATION
  Report Type: Report from Study
  Country: NL (occurrence: NL)
  Receive Date: 20140311
  Receipt Date: 20140311
  Transmission Date: 20141002
  Serious: Yes (Other)
  Sender: FDA-Public Use
  Company Number: NL-B.I. PHARMACEUTICALS,INC./RIDGEFIELD-2014-BI-10689GD

PATIENT
  Sex: Male

DRUGS (3)
  1. PRAMIPEXOLE [Suspect]
     Indication: PRODUCT USED FOR UNKNOWN INDICATION
     Dosage: 0.125 MG ASCENDING UP TO AND INCLUDING 4.5 MG
     Route: 048
  2. PRAMIPEXOLE [Suspect]
     Dosage: 4.5 MG
     Route: 048
  3. DOMPERIDONE [Suspect]
     Indication: DRUG TOXICITY PROPHYLAXIS
     Dosage: 30 MG
     Route: 048

REACTIONS (6)
  - Orthostatic intolerance [Recovered/Resolved]
  - Orthostatic hypotension [Recovered/Resolved]
  - Dizziness [Recovered/Resolved]
  - Hyperhidrosis [Recovered/Resolved]
  - Paraesthesia [Recovered/Resolved]
  - Electrocardiogram ST segment depression [Recovered/Resolved]
